FAERS Safety Report 7786882-4 (Version None)
Quarter: 2011Q3

REPORT INFORMATION
  Report Type: 
  Country: None (occurrence: None)
  Receive Date: 20110929
  Receipt Date: 20110923
  Transmission Date: 20111222
  Serious: Yes (Other)
  Sender: FDA-Public Use
  Company Number: FR-PFIZER INC-2011135461

PATIENT
  Age: 77 Year
  Sex: Male

DRUGS (1)
  1. XALATAN [Suspect]
     Indication: GLAUCOMA
     Dosage: 1 DF, 1X/DAY
     Dates: start: 20110101, end: 20110501

REACTIONS (2)
  - POLYMYALGIA RHEUMATICA [None]
  - PARAESTHESIA [None]
